FAERS Safety Report 4842791-1 (Version None)
Quarter: 2005Q4

REPORT INFORMATION
  Report Type: 
  Country: None (occurrence: None)
  Receive Date: 20051130
  Receipt Date: 20051116
  Transmission Date: 20060501
  Serious: Yes (Death, Life-Threatening, Hospitalization)
  Sender: FDA-Public Use
  Company Number: 2005P1000516

PATIENT
  Age: 71 Year
  Sex: Male
  Weight: 70 kg

DRUGS (8)
  1. RETEPLASE (RETEPLASE) [Suspect]
     Indication: ACUTE MYOCARDIAL INFARCTION
     Dosage: IV
     Route: 042
     Dates: start: 20050704, end: 20050704
  2. ABCIXIMAB (ABCIXIMAB) [Suspect]
     Indication: ACUTE MYOCARDIAL INFARCTION
     Dosage: IV
     Route: 042
     Dates: start: 20050704, end: 20050704
  3. LANSOPRAZOLE [Concomitant]
  4. ATENOLOL [Concomitant]
  5. ASPIRIN [Concomitant]
  6. CLOPIDOGREL [Concomitant]
  7. RAMIPRIL [Concomitant]
  8. SIMVASTATIN [Concomitant]

REACTIONS (12)
  - ARTERIOSCLEROSIS CORONARY ARTERY [None]
  - ATRIAL THROMBOSIS [None]
  - CARDIAC FAILURE ACUTE [None]
  - CARDIAC PROCEDURE COMPLICATION [None]
  - CONDITION AGGRAVATED [None]
  - HAEMORRHAGE [None]
  - HYPOTENSION [None]
  - IATROGENIC INJURY [None]
  - PERICARDIAL EFFUSION [None]
  - PULMONARY EMBOLISM [None]
  - THERAPY NON-RESPONDER [None]
  - VENTRICULAR SEPTAL DEFECT [None]
